FAERS Safety Report 20638908 (Version 1)
Quarter: 2022Q1

REPORT INFORMATION
  Report Type: Spontaneous
  Country: PT (occurrence: PT)
  Receive Date: 20220325
  Receipt Date: 20220325
  Transmission Date: 20220423
  Serious: Yes (Other)
  Sender: FDA-Public Use
  Company Number: None

PATIENT
  Age: 56 Year
  Weight: 86 kg

DRUGS (1)
  1. HYRIMOZ [Suspect]
     Active Substance: ADALIMUMAB-ADAZ
     Indication: Psoriatic arthropathy
     Dosage: 40 MG, Q2W (1X QUINZENAL)
     Route: 058
     Dates: start: 20210510

REACTIONS (4)
  - Rectal haemorrhage [Unknown]
  - Product substitution issue [Unknown]
  - Adverse reaction [Unknown]
  - Uveitis [Unknown]

NARRATIVE: CASE EVENT DATE: 20210525
